FAERS Safety Report 10055354 (Version 1)
Quarter: 2014Q2

REPORT INFORMATION
  Report Type: Spontaneous
  Country: US (occurrence: US)
  Receive Date: 20140403
  Receipt Date: 20140403
  Transmission Date: 20141212
  Serious: No
  Sender: FDA-Public Use
  Company Number: US-BIOGENIDEC-2014BI030151

PATIENT
  Sex: Male
  Weight: 75 kg

DRUGS (2)
  1. TYSABRI [Suspect]
     Indication: MULTIPLE SCLEROSIS
     Route: 042
     Dates: start: 20120420
  2. AVONEX [Concomitant]
     Indication: MULTIPLE SCLEROSIS
     Route: 030
     Dates: start: 20100729

REACTIONS (5)
  - Muscle contractions involuntary [Unknown]
  - Tremor [Unknown]
  - Gait spastic [Unknown]
  - Gait disturbance [Unknown]
  - Nuclear magnetic resonance imaging abnormal [Unknown]
